FAERS Safety Report 19594504 (Version 2)
Quarter: 2021Q3

REPORT INFORMATION
  Report Type: Report from Study
  Country: HN (occurrence: HN)
  Receive Date: 20210722
  Receipt Date: 20210806
  Transmission Date: 20211014
  Serious: Yes (Disabling, Other)
  Sender: FDA-Public Use
  Company Number: NVSC2021HN162962

PATIENT
  Sex: Male
  Weight: 70 kg

DRUGS (8)
  1. PREGABALIN. [Suspect]
     Active Substance: PREGABALIN
     Indication: PRODUCT USED FOR UNKNOWN INDICATION
     Dosage: UNK
     Route: 065
  2. EXFORGE HCT [Suspect]
     Active Substance: AMLODIPINE BESYLATE\HYDROCHLOROTHIAZIDE\VALSARTAN
     Indication: HYPERTENSION
     Dosage: UNK (APPROXIMATELY 2 MONTHS AGO)
     Route: 065
  3. EXFORGE HCT [Suspect]
     Active Substance: AMLODIPINE BESYLATE\HYDROCHLOROTHIAZIDE\VALSARTAN
     Dosage: UNK, QD (1 OF 5 / 160/12.5 MG, SINCE 8)
     Route: 048
  4. TRAYENTA [Concomitant]
     Active Substance: LINAGLIPTIN
     Indication: DIABETES MELLITUS
     Dosage: UNK, QD
     Route: 065
  5. TAMSULON DUO [Concomitant]
     Indication: INFLAMMATION
     Route: 065
  6. EXFORGE [Suspect]
     Active Substance: AMLODIPINE BESYLATE\VALSARTAN
     Dosage: UNK, QD (1 (NO UNITS PROVIDED) (SINCE 9 MONTHS AGO)
     Route: 048
  7. EXFORGE [Suspect]
     Active Substance: AMLODIPINE BESYLATE\VALSARTAN
     Indication: HYPERTENSION
     Dosage: (STARED APPROXIMATELY 4 MONTHS AGO, STOPPED APPROXIMATELY 2 MONTHS AGO)
     Route: 065
  8. INSULIN [Concomitant]
     Active Substance: INSULIN NOS
     Indication: DIABETES MELLITUS
     Route: 065

REACTIONS (2)
  - Hypertension [Unknown]
  - Visual impairment [Unknown]
